FAERS Safety Report 8531300-1 (Version None)
Quarter: 2012Q3

REPORT INFORMATION
  Report Type: 
  Country: None (occurrence: None)
  Receive Date: 20120723
  Receipt Date: 20120717
  Transmission Date: 20120928
  Serious: Yes (Disabling)
  Sender: FDA-Public Use
  Company Number: ZA-ASTRAZENECA-2012SE49861

PATIENT
  Sex: Male

DRUGS (8)
  1. CELEBREX [Concomitant]
     Indication: ANTIINFLAMMATORY THERAPY
     Route: 048
  2. ASPIRIN [Concomitant]
     Route: 048
  3. CASODEX [Suspect]
     Indication: PROSTATE CANCER
     Route: 048
     Dates: start: 20120627
  4. PREXUM PLUS [Concomitant]
     Indication: BLOOD PRESSURE MANAGEMENT
     Route: 048
  5. GLUCOPHAGE [Concomitant]
     Route: 048
     Dates: start: 20110101
  6. TRAMADOL HYDROCHLORIDE/ACETAMINOPHEN [Concomitant]
     Indication: PAIN
     Route: 048
     Dates: start: 20120710
  7. BILICOR [Concomitant]
     Indication: BLOOD PRESSURE MANAGEMENT
     Route: 048
  8. SIMVASTATIN [Concomitant]
     Route: 048

REACTIONS (1)
  - MUSCULOSKELETAL PAIN [None]
